FAERS Safety Report 6691940-1 (Version None)
Quarter: 2010Q2

REPORT INFORMATION
  Report Type: 
  Country: None (occurrence: None)
  Receive Date: 20100422
  Receipt Date: 20091215
  Transmission Date: 20101027
  Serious: Yes (Hospitalization)
  Sender: FDA-Public Use
  Company Number: US-ASTRAZENECA-2009SE32323

PATIENT
  Sex: Female
  Weight: 94 kg

DRUGS (4)
  1. METOPROLOL SUCCINATE [Suspect]
     Indication: HYPERTENSION
     Route: 048
     Dates: start: 20091117, end: 20091203
  2. AMLODIPINE [Concomitant]
  3. ASPIRIN [Concomitant]
     Route: 048
  4. PANTOPRAZOLE [Concomitant]

REACTIONS (1)
  - CHEST PAIN [None]
